FAERS Safety Report 9142679 (Version 1)
Quarter: 2013Q1

REPORT INFORMATION
  Report Type: Spontaneous
  Country: US (occurrence: US)
  Receive Date: 20130306
  Receipt Date: 20130306
  Transmission Date: 20140127
  Serious: Yes (Other)
  Sender: FDA-Public Use
  Company Number: PHEH2013US005242

PATIENT
  Sex: Female

DRUGS (2)
  1. DIOVAN HCT [Suspect]
     Dosage: 1 DF, (320 MG OF VALS/12.5 MG OF HYDRO)
  2. AMLODIPINE BESYLATE [Concomitant]
     Dosage: 5 MG, UNK

REACTIONS (1)
  - Myocardial infarction [Unknown]
